FAERS Safety Report 6692198-X (Version None)
Quarter: 2010Q2

REPORT INFORMATION
  Report Type: 
  Country: None (occurrence: None)
  Receive Date: 20100422
  Receipt Date: 20090724
  Transmission Date: 20101027
  Serious: No
  Sender: FDA-Public Use
  Company Number: US-ASTRAZENECA-2009SE05859

PATIENT
  Age: 63 Year
  Sex: Female

DRUGS (2)
  1. TOPROL-XL [Suspect]
     Route: 048
     Dates: start: 20090401
  2. GENACE [Concomitant]

REACTIONS (7)
  - DRY EYE [None]
  - DYSGEUSIA [None]
  - FATIGUE [None]
  - MOOD SWINGS [None]
  - PRURITUS [None]
  - RASH [None]
  - SWELLING FACE [None]
